FAERS Safety Report 15868673 (Version 1)
Quarter: 2019Q1

REPORT INFORMATION
  Report Type: Spontaneous
  Country: FR (occurrence: FR)
  Receive Date: 20190125
  Receipt Date: 20190125
  Transmission Date: 20190417
  Serious: Yes (Hospitalization)
  Sender: FDA-Public Use
  Company Number: FR-TEVA-2019-FR-1002981

PATIENT
  Age: 85 Year
  Sex: Female
  Weight: 68 kg

DRUGS (9)
  1. OMEPRAZOLE. [Concomitant]
     Active Substance: OMEPRAZOLE
  2. GABAPENTINE [Suspect]
     Active Substance: GABAPENTIN
     Indication: PAIN
     Dosage: 2600 MILLIGRAM DAILY;
     Route: 048
     Dates: end: 20180517
  3. BISOPROLOL (HEMIFUMARATE DE) [Concomitant]
     Active Substance: BISOPROLOL FUMARATE
  4. CALCIVITAM [Concomitant]
  5. OXYNORM [Concomitant]
     Active Substance: OXYCODONE HYDROCHLORIDE
  6. KARDEGIC [Concomitant]
     Active Substance: ASPIRIN DL-LYSINE
  7. CRESTOR [Concomitant]
     Active Substance: ROSUVASTATIN CALCIUM
  8. RISEDRONATE MONOSODIQUE ANHYDRE [Concomitant]
     Active Substance: RISEDRONIC ACID
  9. OXYCONTIN [Concomitant]
     Active Substance: OXYCODONE HYDROCHLORIDE

REACTIONS (1)
  - Epileptic encephalopathy [Recovered/Resolved]

NARRATIVE: CASE EVENT DATE: 20180516
